FAERS Safety Report 13998267 (Version 7)
Quarter: 2018Q1

REPORT INFORMATION
  Report Type: Spontaneous
  Country: US (occurrence: US)
  Receive Date: 20170921
  Receipt Date: 20180315
  Transmission Date: 20180508
  Serious: Yes (Death, Congenital Anomaly, Other)
  Sender: FDA-Public Use
  Company Number: PHEH2017US030501

PATIENT
  Sex: Male

DRUGS (2)
  1. ONDANSETRONE DR. REDDY^S [Suspect]
     Active Substance: ONDANSETRON HYDROCHLORIDE
     Indication: FOETAL EXPOSURE DURING PREGNANCY
     Dosage: MOTHER DOSE: UNK
     Route: 064
  2. ZOFRAN [Suspect]
     Active Substance: ONDANSETRON HYDROCHLORIDE
     Indication: FOETAL EXPOSURE DURING PREGNANCY
     Dosage: MOTHER DOSE:1 DF, PRN
     Route: 064

REACTIONS (19)
  - Anomalous pulmonary venous connection [Unknown]
  - Chylothorax [Unknown]
  - Atrioventricular septal defect [Unknown]
  - Laevocardia [Unknown]
  - Pulmonary valve disease [Unknown]
  - Injury [Unknown]
  - Heterotaxia [Unknown]
  - Premature baby [Unknown]
  - Tricuspid valve disease [Unknown]
  - Infantile apnoea [Unknown]
  - Neonatal respiratory failure [Unknown]
  - Death [Fatal]
  - Double outlet right ventricle [Unknown]
  - Hypoglycaemia neonatal [Unknown]
  - Neonatal hypocalcaemia [Unknown]
  - Pulmonary vein stenosis [Unknown]
  - Foetal exposure during pregnancy [Unknown]
  - Vitamin D deficiency [Unknown]
  - Cardiac arrest [Unknown]

NARRATIVE: CASE EVENT DATE: 20150812
